FAERS Safety Report 5409363-1 (Version None)
Quarter: 2007Q3

REPORT INFORMATION
  Report Type: 
  Country: None (occurrence: None)
  Receive Date: 20070809
  Receipt Date: 20070731
  Transmission Date: 20080115
  Serious: Yes (Hospitalization)
  Sender: FDA-Public Use
  Company Number: JP-JNJFOC-20070506060

PATIENT
  Age: 5 Decade
  Sex: Male

DRUGS (2)
  1. RISPERDAL [Suspect]
     Indication: SCHIZOPHRENIA
     Route: 048
  2. BIPERIDEN HYDROCHLORIDE TAB [Concomitant]
     Indication: SCHIZOPHRENIA

REACTIONS (3)
  - HYPERPROLACTINAEMIA [None]
  - INSOMNIA [None]
  - MUSCLE SPASMS [None]
